FAERS Safety Report 15017907 (Version 1)
Quarter: 2018Q2

REPORT INFORMATION
  Report Type: Spontaneous
  Country: DE (occurrence: DE)
  Receive Date: 20180615
  Receipt Date: 20180615
  Transmission Date: 20180711
  Serious: Yes (Hospitalization)
  Sender: FDA-Public Use
  Company Number: DE-TEVA-2018-DE-908463

PATIENT
  Age: 84 Year
  Sex: Female

DRUGS (5)
  1. METOPROLOL. [Suspect]
     Active Substance: METOPROLOL
     Dosage: 1-0-0-0
     Route: 065
  2. VOTUM PLUS 20MG/12,5MG [Concomitant]
     Dosage: 20|12.5 MG, 1-0-0-0
     Route: 065
  3. MARCUMAR [Suspect]
     Active Substance: PHENPROCOUMON
     Dosage: NACH INR
     Route: 065
  4. SPIRO COMP. FORTE-RATIOPHARM 100 MG/20 MG FILMTABLETTEN [Concomitant]
     Dosage: 100|20 MG
     Route: 065
  5. LERCANIDIPINE [Concomitant]
     Active Substance: LERCANIDIPINE
     Dosage: 0-0-1-0

REACTIONS (2)
  - Anaemia [Unknown]
  - Dyspnoea [Unknown]
